FAERS Safety Report 4536942-6 (Version None)
Quarter: 2004Q4

REPORT INFORMATION
  Report Type: 
  Country: None (occurrence: None)
  Receive Date: 20041220
  Receipt Date: 20041209
  Transmission Date: 20050328
  Serious: Yes (Other)
  Sender: FDA-Public Use
  Company Number: 211030

PATIENT
  Sex: Male

DRUGS (1)
  1. PROTROPIN (SOMATREM) POWDER [Suspect]
     Dates: end: 19960101

REACTIONS (1)
  - HEPATIC NEOPLASM MALIGNANT [None]
